FAERS Safety Report 16387258 (Version 1)
Quarter: 2019Q2

REPORT INFORMATION
  Report Type: Spontaneous
  Country: AU (occurrence: AU)
  Receive Date: 20190604
  Receipt Date: 20190604
  Transmission Date: 20190711
  Serious: Yes (Hospitalization)
  Sender: FDA-Public Use
  Company Number: AU-SUN PHARMACEUTICAL INDUSTRIES LTD-2019RR-209399

PATIENT
  Age: 16 Year
  Sex: Female

DRUGS (2)
  1. HYDROXYCHLOROQUINE [Suspect]
     Active Substance: HYDROXYCHLOROQUINE
     Indication: LUPUS-LIKE SYNDROME
     Dosage: ONE HUNDRED 200 MG TABLETS AT ONCE
     Route: 048
  2. SERTRALINE [Suspect]
     Active Substance: SERTRALINE HYDROCHLORIDE
     Indication: DEPRESSION
     Dosage: UNK
     Route: 065

REACTIONS (6)
  - Lupus-like syndrome [Unknown]
  - Depressed level of consciousness [Recovering/Resolving]
  - Suicidal ideation [Unknown]
  - Intentional overdose [Unknown]
  - Hypotension [Recovering/Resolving]
  - Electrolyte imbalance [Recovering/Resolving]
